FAERS Safety Report 10109951 (Version 1)
Quarter: 2014Q2

REPORT INFORMATION
  Report Type: Spontaneous
  Country: US (occurrence: US)
  Receive Date: 20140425
  Receipt Date: 20140425
  Transmission Date: 20141212
  Serious: Yes (Other)
  Sender: FDA-Public Use
  Company Number: US-BAYER-2014-056597

PATIENT
  Age: 30 Year
  Sex: Male

DRUGS (3)
  1. MOXIFLOXACIN ORAL [Suspect]
     Indication: ENDOCARDITIS
     Route: 048
  2. AZITHROMYCIN [Concomitant]
     Indication: ENDOCARDITIS
     Route: 048
  3. TOBRAMYCIN [Concomitant]
     Indication: ENDOCARDITIS
     Route: 042

REACTIONS (4)
  - Renal infarct [Recovered/Resolved]
  - Splenic infarction [Recovered/Resolved]
  - Brain abscess [Recovered/Resolved]
  - Off label use [None]
